FAERS Safety Report 5377852-4 (Version None)
Quarter: 2007Q2

REPORT INFORMATION
  Report Type: 
  Country: None (occurrence: None)
  Receive Date: 20070629
  Receipt Date: 20070621
  Transmission Date: 20071010
  Serious: Yes (Hospitalization)
  Sender: FDA-Public Use
  Company Number: 2007325001

PATIENT
  Age: 70 Year
  Sex: Female

DRUGS (1)
  1. ROGAINE [Suspect]
     Dosage: 1 ML BID (1 ML, 2 IN 1 D), TOPICAL
     Route: 061
     Dates: start: 20070111

REACTIONS (3)
  - AUTOIMMUNE DISORDER [None]
  - OEDEMA PERIPHERAL [None]
  - THYROID DISORDER [None]
